FAERS Safety Report 8533234-5 (Version None)
Quarter: 2012Q3

REPORT INFORMATION
  Report Type: 
  Country: None (occurrence: None)
  Receive Date: 20120717
  Receipt Date: 20120717
  Transmission Date: 20120928
  Serious: Yes (Disabling)
  Sender: FDA-Public Use
  Company Number: None

PATIENT
  Age: 65 Year
  Sex: Female
  Weight: 54.4316 kg

DRUGS (1)
  1. MACRODANTIN [Suspect]
     Indication: URINARY TRACT INFECTION STAPHYLOCOCCAL
     Dosage: 50 MGM O.D. PO
     Route: 048
     Dates: start: 20080701, end: 20090715

REACTIONS (1)
  - PULMONARY FIBROSIS [None]
